FAERS Safety Report 6858693-5 (Version None)
Quarter: 2010Q3

REPORT INFORMATION
  Report Type: 
  Country: None (occurrence: None)
  Receive Date: 20100719
  Receipt Date: 20080211
  Transmission Date: 20110219
  Serious: No
  Sender: FDA-Public Use
  Company Number: US-PFIZER INC-2008014788

PATIENT
  Sex: Female
  Weight: 84.4 kg

DRUGS (4)
  1. CHANTIX [Suspect]
     Indication: SMOKING CESSATION THERAPY
     Dates: start: 20080131
  2. CYMBALTA [Concomitant]
  3. LISINOPRIL [Concomitant]
  4. XANAX [Concomitant]

REACTIONS (2)
  - DRUG DOSE OMISSION [None]
  - SLEEP DISORDER [None]
